FAERS Safety Report 18047863 (Version 1)
Quarter: 2020Q3

REPORT INFORMATION
  Report Type: Spontaneous
  Country: US (occurrence: US)
  Receive Date: 20200720
  Receipt Date: 20200720
  Transmission Date: 20201103
  Serious: Yes (Disabling)
  Sender: FDA-Public Use
  Company Number: None

PATIENT
  Age: 33 Year
  Sex: Female
  Weight: 72 kg

DRUGS (1)
  1. ASSURED INSTANT HAND SANITIZER VITAMIN E AND ALOE [Suspect]
     Active Substance: ALCOHOL
     Route: 061
     Dates: start: 20200310, end: 20200610

REACTIONS (3)
  - Nausea [None]
  - Dizziness [None]
  - Toxicity to various agents [None]

NARRATIVE: CASE EVENT DATE: 20200501
